FAERS Safety Report 17444784 (Version 2)
Quarter: 2020Q1

REPORT INFORMATION
  Report Type: Spontaneous
  Country: US (occurrence: US)
  Receive Date: 20200221
  Receipt Date: 20200326
  Transmission Date: 20200409
  Serious: No
  Sender: FDA-Public Use
  Company Number: US-JNJFOC-20200212256

PATIENT
  Sex: Female
  Weight: 68.1 kg

DRUGS (5)
  1. SPRAVATO [Suspect]
     Active Substance: ESKETAMINE
     Dates: start: 202001, end: 202001
  2. SPRAVATO [Suspect]
     Active Substance: ESKETAMINE
     Dates: start: 202001
  3. TRINTELLIX [Concomitant]
     Active Substance: VORTIOXETINE HYDROBROMIDE
     Indication: ANTIDEPRESSANT THERAPY
     Route: 065
     Dates: start: 202001
  4. FLONASE [Concomitant]
     Active Substance: FLUTICASONE PROPIONATE
     Indication: MULTIPLE ALLERGIES
     Route: 065
  5. SPRAVATO [Suspect]
     Active Substance: ESKETAMINE
     Indication: DEPRESSION
     Dates: start: 202001, end: 202001

REACTIONS (13)
  - Fatigue [Not Recovered/Not Resolved]
  - Emotional disorder [Unknown]
  - Fear [Unknown]
  - Pollakiuria [Not Recovered/Not Resolved]
  - Dysuria [Not Recovered/Not Resolved]
  - Dissociation [Not Recovered/Not Resolved]
  - Inappropriate schedule of product administration [Unknown]
  - Discomfort [Unknown]
  - Therapeutic product effect decreased [Unknown]
  - Crying [Recovered/Resolved]
  - Thinking abnormal [Recovered/Resolved]
  - Panic attack [Recovered/Resolved]
  - Discomfort [Not Recovered/Not Resolved]

NARRATIVE: CASE EVENT DATE: 2020
